FAERS Safety Report 25805189 (Version 1)
Quarter: 2025Q3

REPORT INFORMATION
  Report Type: Spontaneous
  Country: NP (occurrence: NP)
  Receive Date: 20250916
  Receipt Date: 20250916
  Transmission Date: 20251020
  Serious: Yes (Hospitalization, Other)
  Sender: UNICHEM
  Company Number: NP-UNICHEM LABORATORIES LIMITED-UNI-2025-NP-003187

PATIENT

DRUGS (1)
  1. CARBAMAZEPINE [Suspect]
     Active Substance: CARBAMAZEPINE
     Indication: Seizure
     Route: 065

REACTIONS (1)
  - Malignant hypertension [Recovering/Resolving]
